FAERS Safety Report 23364940 (Version 2)
Quarter: 2024Q1

REPORT INFORMATION
  Report Type: Spontaneous
  Country: US (occurrence: US)
  Receive Date: 20240104
  Receipt Date: 20240306
  Transmission Date: 20240410
  Serious: Yes (Life-Threatening, Hospitalization)
  Sender: FDA-Public Use
  Company Number: US-TEVA-VS-3139521

PATIENT
  Age: 48 Year
  Sex: Male

DRUGS (2)
  1. OXYCODONE [Suspect]
     Active Substance: OXYCODONE\OXYCODONE HYDROCHLORIDE
     Indication: Postoperative analgesia
     Route: 065
  2. HYDROMORPHONE [Suspect]
     Active Substance: HYDROMORPHONE
     Indication: Postoperative analgesia
     Route: 065

REACTIONS (7)
  - Anaphylactic reaction [Unknown]
  - Erythema [Unknown]
  - Hyperhidrosis [Unknown]
  - Palpitations [Unknown]
  - Dyspnoea [Unknown]
  - Vomiting [Unknown]
  - Loss of consciousness [Unknown]
